FAERS Safety Report 24330558 (Version 1)
Quarter: 2024Q3

REPORT INFORMATION
  Report Type: Spontaneous
  Country: CZ (occurrence: CZ)
  Receive Date: 20240918
  Receipt Date: 20240918
  Transmission Date: 20241016
  Serious: Yes (Other)
  Sender: CHEPLAPHARM
  Company Number: None

PATIENT
  Age: 52 Year
  Sex: Female

DRUGS (7)
  1. CAPECITABINE [Suspect]
     Active Substance: CAPECITABINE
     Indication: Mucinous adenocarcinoma of appendix
     Dosage: TERMINATED AFTER FIRST CYCLE - XELIRI REGIMEN
     Dates: start: 201201
  2. CAPECITABINE [Suspect]
     Active Substance: CAPECITABINE
     Indication: Colorectal cancer metastatic
     Dosage: TERMINATED AFTER FIRST CYCLE - XELIRI REGIMEN
     Dates: start: 201201
  3. CAPECITABINE [Suspect]
     Active Substance: CAPECITABINE
     Indication: Mucinous adenocarcinoma of appendix
     Dosage: AFTER 2 CYCLES
     Route: 047
     Dates: start: 201309, end: 201403
  4. CAPECITABINE [Suspect]
     Active Substance: CAPECITABINE
     Indication: Colorectal cancer metastatic
     Dosage: AFTER 2 CYCLES
     Route: 047
     Dates: start: 201309, end: 201403
  5. CAPECITABINE [Suspect]
     Active Substance: CAPECITABINE
     Indication: Mucinous adenocarcinoma of appendix
     Dosage: MONOTHERAPY
     Dates: end: 201207
  6. CAPECITABINE [Suspect]
     Active Substance: CAPECITABINE
     Indication: Colorectal cancer metastatic
     Dosage: MONOTHERAPY
     Dates: end: 201207
  7. IRINOTECAN [Suspect]
     Active Substance: IRINOTECAN
     Indication: Colorectal cancer metastatic
     Dates: start: 201201

REACTIONS (3)
  - Mucosal toxicity [Unknown]
  - Diarrhoea [Unknown]
  - Palmar-plantar erythrodysaesthesia syndrome [Unknown]

NARRATIVE: CASE EVENT DATE: 20120101
